FAERS Safety Report 20420533 (Version 1)
Quarter: 2022Q1

REPORT INFORMATION
  Report Type: Spontaneous
  Country: US (occurrence: US)
  Receive Date: 20220203
  Receipt Date: 20220203
  Transmission Date: 20220423
  Serious: No
  Sender: FDA-Public Use
  Company Number: US-009507513-2201USA008256

PATIENT
  Sex: Female

DRUGS (5)
  1. TEMODAR [Suspect]
     Active Substance: TEMOZOLOMIDE
     Indication: Acral lentiginous melanoma
     Dosage: LOW DOSE
     Dates: start: 2012
  2. INTRON A [Suspect]
     Active Substance: INTERFERON ALFA-2B
     Indication: Acral lentiginous melanoma
     Dosage: 2 CYCLES
     Dates: start: 200310
  3. CISPLATIN [Concomitant]
     Active Substance: CISPLATIN
     Indication: Acral lentiginous melanoma
     Dosage: 2 CYCLES
     Dates: start: 200310
  4. VINBLASTINE [Concomitant]
     Active Substance: VINBLASTINE
     Indication: Acral lentiginous melanoma
     Dosage: 2 CYCLES
     Dates: start: 200310
  5. DACARBAZINE [Concomitant]
     Active Substance: DACARBAZINE
     Indication: Acral lentiginous melanoma
     Dosage: 2 CYCLES
     Dates: start: 200310

REACTIONS (1)
  - Product use in unapproved indication [Unknown]

NARRATIVE: CASE EVENT DATE: 20031001
